FAERS Safety Report 7682483-7 (Version None)
Quarter: 2011Q3

REPORT INFORMATION
  Report Type: 
  Country: None (occurrence: None)
  Receive Date: 20110815
  Receipt Date: 20110808
  Transmission Date: 20111222
  Serious: Yes (Other)
  Sender: FDA-Public Use
  Company Number: US-CEPHALON-US018311

PATIENT
  Age: 69 Year
  Sex: Female

DRUGS (6)
  1. PROVIGIL [Suspect]
     Indication: NARCOLEPSY
     Route: 048
     Dates: start: 20050101, end: 20050101
  2. PROVIGIL [Suspect]
     Route: 048
     Dates: start: 20050101, end: 20050101
  3. HYPERTENSION MEDICATION [Concomitant]
     Indication: HYPERTENSION
     Route: 048
  4. PROVIGIL [Suspect]
     Route: 048
     Dates: start: 20050101
  5. DIABETES MEDICATION [Concomitant]
     Indication: DIABETES MELLITUS
     Route: 048
     Dates: start: 20050101
  6. PROVIGIL [Suspect]
     Indication: SLEEP APNOEA SYNDROME
     Route: 048
     Dates: start: 20050101, end: 20050101

REACTIONS (4)
  - CATAPLEXY [None]
  - TRANSIENT ISCHAEMIC ATTACK [None]
  - MEDICATION ERROR [None]
  - ACCIDENTAL OVERDOSE [None]
